FAERS Safety Report 9434729 (Version 1)
Quarter: 2013Q3

REPORT INFORMATION
  Report Type: Spontaneous
  Country: US (occurrence: US)
  Receive Date: 20130801
  Receipt Date: 20130801
  Transmission Date: 20140515
  Serious: No
  Sender: FDA-Public Use
  Company Number: US-JNJFOC-20130800209

PATIENT
  Sex: Male
  Weight: 112.49 kg

DRUGS (13)
  1. DURAGESIC [Suspect]
     Indication: PAIN
     Route: 062
  2. DURAGESIC [Suspect]
     Indication: PAIN
     Route: 062
  3. DURAGESIC [Suspect]
     Indication: PAIN
     Route: 062
     Dates: end: 201305
  4. MORPHINE [Concomitant]
     Indication: PAIN
     Route: 065
     Dates: end: 201305
  5. OXYCODONE [Concomitant]
     Indication: PAIN
     Route: 048
     Dates: end: 201305
  6. CYMBALTA [Concomitant]
     Indication: PAIN
     Route: 048
     Dates: start: 1998
  7. CYMBALTA [Concomitant]
     Indication: DEPRESSION
     Route: 048
     Dates: start: 1998
  8. NEURONTIN [Concomitant]
     Indication: NEURALGIA
     Route: 048
     Dates: start: 1995
  9. REMERON [Concomitant]
     Indication: SLEEP DISORDER
     Route: 048
     Dates: start: 1995
  10. REMERON [Concomitant]
     Indication: DEPRESSION
     Route: 048
     Dates: start: 1995
  11. LISINOPRIL [Concomitant]
     Indication: HYPERTENSION
     Route: 048
     Dates: start: 2008
  12. ANTIVERT [Concomitant]
     Indication: DIZZINESS
     Route: 048
     Dates: start: 2011
  13. XANAX [Concomitant]
     Route: 048

REACTIONS (4)
  - Hyperhidrosis [Unknown]
  - Product quality issue [Unknown]
  - Wrong technique in drug usage process [Unknown]
  - Wrong technique in drug usage process [Unknown]
